FAERS Safety Report 8520380-5 (Version None)
Quarter: 2012Q3

REPORT INFORMATION
  Report Type: 
  Country: None (occurrence: None)
  Receive Date: 20120713
  Receipt Date: 20120713
  Transmission Date: 20120928
  Serious: Yes (Hospitalization)
  Sender: FDA-Public Use
  Company Number: None

PATIENT
  Age: 79 Year
  Sex: Male
  Weight: 55.1 kg

DRUGS (2)
  1. OXYCODONE HCL [Suspect]
     Indication: PAIN
     Dosage: MG PO
     Route: 048
     Dates: start: 20120508, end: 20120511
  2. OXYBUTYNIN [Suspect]
     Indication: BLADDER PAIN
     Dosage: MG BID PO
     Route: 048
     Dates: start: 20120508, end: 20120511

REACTIONS (4)
  - FALL [None]
  - FEMORAL NECK FRACTURE [None]
  - HIP FRACTURE [None]
  - DIZZINESS [None]
